FAERS Safety Report 7935115-4 (Version None)
Quarter: 2011Q4

REPORT INFORMATION
  Report Type: 
  Country: None (occurrence: None)
  Receive Date: 20111117
  Receipt Date: 20111110
  Transmission Date: 20120403
  Serious: Yes (Hospitalization, Other)
  Sender: FDA-Public Use
  Company Number: 2011SP019412

PATIENT
  Age: 36 Year
  Sex: Female

DRUGS (3)
  1. NUVARING [Suspect]
     Indication: ENDOMETRIOSIS
     Dates: start: 20090801, end: 20100228
  2. NUVARING [Suspect]
     Indication: MENSTRUATION IRREGULAR
     Dates: start: 20090801, end: 20100228
  3. SYNTHROID [Concomitant]

REACTIONS (27)
  - URINARY TRACT INFECTION [None]
  - PULMONARY EMBOLISM [None]
  - AMNESIA [None]
  - VISION BLURRED [None]
  - DYSARTHRIA [None]
  - FALL [None]
  - CEREBRAL ARTERY THROMBOSIS [None]
  - SENSORY LOSS [None]
  - DEAFNESS [None]
  - MUSCULAR WEAKNESS [None]
  - ASTHENIA [None]
  - SYNCOPE [None]
  - CEREBRAL INFARCTION [None]
  - CEREBROVASCULAR ACCIDENT [None]
  - CONVULSION [None]
  - BLOOD THYROID STIMULATING HORMONE INCREASED [None]
  - AMENORRHOEA [None]
  - MENORRHAGIA [None]
  - CHEST PAIN [None]
  - STRESS [None]
  - HYPERLIPIDAEMIA [None]
  - INAPPROPRIATE SCHEDULE OF DRUG ADMINISTRATION [None]
  - METRORRHAGIA [None]
  - HEADACHE [None]
  - MIGRAINE [None]
  - MENSTRUATION IRREGULAR [None]
  - APHASIA [None]
